FAERS Safety Report 23473839 (Version 1)
Quarter: 2024Q1

REPORT INFORMATION
  Report Type: Spontaneous
  Country: None (occurrence: GB)
  Receive Date: 20240203
  Receipt Date: 20240203
  Transmission Date: 20240409
  Serious: Yes (Hospitalization, Other)
  Sender: FDA-Public Use
  Company Number: GB-Breckenridge Pharmaceutical, Inc.-2152577

PATIENT
  Age: 56 Year
  Sex: Female
  Weight: 67 kg

DRUGS (1)
  1. DULOXETINE [Suspect]
     Active Substance: DULOXETINE
     Indication: Depression
     Route: 048
     Dates: start: 20150505

REACTIONS (2)
  - Thunderclap headache [Recovered/Resolved]
  - Reversible cerebral vasoconstriction syndrome [Unknown]
